FAERS Safety Report 22019578 (Version 4)
Quarter: 2023Q2

REPORT INFORMATION
  Report Type: Report from Study
  Country: CA (occurrence: CA)
  Receive Date: 20230222
  Receipt Date: 20230612
  Transmission Date: 20230722
  Serious: Yes (Other)
  Sender: FDA-Public Use
  Company Number: CA-JNJFOC-20230134098

PATIENT
  Age: 12 Year
  Sex: Male
  Weight: 53 kg

DRUGS (1)
  1. REMICADE [Suspect]
     Active Substance: INFLIXIMAB
     Indication: Crohn^s disease
     Dosage: THE PATIENT ALSO RECEIVED DOSE ON 11-AUG-2022.?ON 13-FEB-2023, THE PATIENT RECEIVED 11TH INFLIXIMAB
     Route: 041
     Dates: start: 20220512

REACTIONS (8)
  - Clostridium difficile infection [Unknown]
  - Crohn^s disease [Unknown]
  - Nasopharyngitis [Unknown]
  - Viral infection [Recovered/Resolved]
  - Gastrooesophageal reflux disease [Unknown]
  - Vertigo [Recovered/Resolved]
  - Dyspepsia [Unknown]
  - Myalgia [Unknown]

NARRATIVE: CASE EVENT DATE: 20230101
